FAERS Safety Report 17945685 (Version 1)
Quarter: 2020Q2

REPORT INFORMATION
  Report Type: Spontaneous
  Country: FR (occurrence: FR)
  Receive Date: 20200626
  Receipt Date: 20200626
  Transmission Date: 20200714
  Serious: Yes (Death, Other)
  Sender: FDA-Public Use
  Company Number: FR-SUN PHARMACEUTICAL INDUSTRIES LTD-2020RR-251594

PATIENT
  Age: 21 Year
  Sex: Male

DRUGS (4)
  1. ALPRAZOLAM. [Suspect]
     Active Substance: ALPRAZOLAM
     Indication: DRUG ABUSE
     Dosage: NON RENSEIGNEE ()
     Route: 065
  2. CANNABIS [Suspect]
     Active Substance: CANNABIS SATIVA SUBSP. INDICA TOP
     Indication: DRUG ABUSE
     Dosage: NON RENSEIGNEE ()
     Route: 065
  3. TRAMADOL. [Suspect]
     Active Substance: TRAMADOL
     Indication: DRUG ABUSE
     Dosage: NON RENSEIGNEE ()
     Route: 065
  4. SUBSTANCE PSYCHOACTIVE [UNSPECIFIED] [Suspect]
     Active Substance: UNSPECIFIED INGREDIENT
     Indication: SUBSTANCE ABUSE
     Dosage: NON RENSEIGNEE ()
     Route: 065

REACTIONS (3)
  - Drug abuse [Fatal]
  - Behaviour disorder [Not Recovered/Not Resolved]
  - Withdrawal syndrome [Recovered/Resolved]

NARRATIVE: CASE EVENT DATE: 2019
